FAERS Safety Report 19079905 (Version 1)
Quarter: 2021Q1

REPORT INFORMATION
  Report Type: Spontaneous
  Country: FR (occurrence: FR)
  Receive Date: 20210331
  Receipt Date: 20210331
  Transmission Date: 20210420
  Serious: Yes (Hospitalization)
  Sender: FDA-Public Use
  Company Number: NVSC2021FR068503

PATIENT
  Age: 32 Year
  Sex: Female

DRUGS (2)
  1. ZOLMITRIPTAN. [Concomitant]
     Active Substance: ZOLMITRIPTAN
     Indication: MIGRAINE WITH AURA
     Dosage: 2.5 MG,(1 TOTAL)
     Route: 048
     Dates: start: 20210301, end: 20210301
  2. PARLODEL [Suspect]
     Active Substance: BROMOCRIPTINE MESYLATE
     Indication: HYPERPROLACTINAEMIA
     Dosage: 1.25 MG,QD
     Route: 048
     Dates: start: 20210301, end: 20210307

REACTIONS (1)
  - Transient ischaemic attack [Recovering/Resolving]

NARRATIVE: CASE EVENT DATE: 20210302
